FAERS Safety Report 4995307-3 (Version None)
Quarter: 2006Q2

REPORT INFORMATION
  Report Type: 
  Country: None (occurrence: None)
  Receive Date: 20060503
  Receipt Date: 20060418
  Transmission Date: 20061013
  Serious: Yes (Congenital Anomaly)
  Sender: FDA-Public Use
  Company Number: 8016576

PATIENT
  Age: 6 Month
  Sex: Male
  Weight: 7 kg

DRUGS (6)
  1. KEPPRA [Suspect]
     Indication: EPILEPSY
     Dosage: 750 MG TRP
     Route: 064
     Dates: start: 20041201, end: 20050831
  2. PHENOBARBITAL TAB [Concomitant]
  3. PRENATAL VITAMINS /01549301/ [Concomitant]
  4. ZITHROMAX [Concomitant]
  5. ZANTAC [Concomitant]
  6. VITAMIN K [Concomitant]

REACTIONS (4)
  - DELAYED FONTANELLE CLOSURE [None]
  - DRUG EXPOSURE DURING PREGNANCY [None]
  - HAEMANGIOMA [None]
  - TOOTH DEVELOPMENT DISORDER [None]
